FAERS Safety Report 5059800-X (Version None)
Quarter: 2006Q3

REPORT INFORMATION
  Report Type: 
  Country: None (occurrence: None)
  Receive Date: 20060718
  Receipt Date: 20060713
  Transmission Date: 20061208
  Serious: Yes (Hospitalization)
  Sender: FDA-Public Use
  Company Number: 2006P1000318

PATIENT
  Age: 62 Year
  Sex: Female

DRUGS (3)
  1. RETEPLASE (RETEPLASE) [Suspect]
     Indication: ACUTE MYOCARDIAL INFARCTION
     Dosage: 5 IU;2X;IV
     Route: 042
     Dates: start: 20060414, end: 20060414
  2. REOPRO [Suspect]
     Indication: ACUTE MYOCARDIAL INFARCTION
     Dosage: SEE IMAGE
     Route: 040
     Dates: start: 20060414, end: 20060414
  3. HEPARIN [Concomitant]

REACTIONS (3)
  - ATRIOVENTRICULAR BLOCK [None]
  - MYOCARDIAL INFARCTION [None]
  - PNEUMONIA [None]
